FAERS Safety Report 17005833 (Version 1)
Quarter: 2019Q4

REPORT INFORMATION
  Report Type: Spontaneous
  Country: US (occurrence: US)
  Receive Date: 20191106
  Receipt Date: 20191106
  Transmission Date: 20200122
  Serious: No
  Sender: FDA-Public Use
  Company Number: None

PATIENT
  Age: 54 Year
  Sex: Female
  Weight: 121.5 kg

DRUGS (5)
  1. TYLENOL EXTRA STRENGTH [Concomitant]
     Active Substance: ACETAMINOPHEN
  2. MELATONIN [Concomitant]
     Active Substance: MELATONIN
  3. VALERIAN ROOT [Concomitant]
     Active Substance: VALERIAN
  4. BIRTH CONTROL [Concomitant]
     Active Substance: UNSPECIFIED INGREDIENT
  5. APRISO [Suspect]
     Active Substance: MESALAMINE
     Indication: COLITIS ULCERATIVE
     Dosage: ?          QUANTITY:4 CAPSULE(S);?
     Route: 048
     Dates: start: 20191105, end: 20191106

REACTIONS (5)
  - Chills [None]
  - Abdominal pain upper [None]
  - Diarrhoea [None]
  - Hyperaesthesia [None]
  - Headache [None]

NARRATIVE: CASE EVENT DATE: 20191105
